FAERS Safety Report 9103604 (Version 2)
Quarter: 2013Q2

REPORT INFORMATION
  Report Type: Spontaneous
  Country: JP (occurrence: JP)
  Receive Date: 20130219
  Receipt Date: 20130403
  Transmission Date: 20140414
  Serious: Yes (Hospitalization)
  Sender: FDA-Public Use
  Company Number: JP-GLAXOSMITHKLINE-B0868038A

PATIENT
  Age: 71 Year
  Sex: Male

DRUGS (10)
  1. VALTREX [Suspect]
     Indication: HERPES ZOSTER
     Dosage: 500MG TWICE PER DAY
     Route: 048
     Dates: start: 20130208, end: 20130208
  2. VALTREX [Suspect]
     Indication: HERPES ZOSTER
     Dosage: 500MG PER DAY
     Route: 048
     Dates: start: 20130209, end: 20130210
  3. SIGMART [Concomitant]
     Dosage: 5MG THREE TIMES PER DAY
     Route: 048
  4. DEPAS [Concomitant]
     Dosage: .5MG PER DAY
     Route: 048
  5. ROHYPNOL [Concomitant]
     Dosage: .5MG PER DAY
     Route: 048
  6. KALIMATE [Concomitant]
     Dosage: 50G PER DAY
     Route: 048
  7. REGPARA [Concomitant]
     Dosage: 25MG TWICE PER DAY
     Route: 048
  8. AVAPRO [Concomitant]
     Dosage: 100MG PER DAY
     Route: 048
  9. NEXIUM [Concomitant]
     Dosage: 20MG PER DAY
     Route: 048
  10. FOSRENOL [Concomitant]
     Dosage: 250MG THREE TIMES PER DAY
     Route: 048

REACTIONS (7)
  - Altered state of consciousness [Recovering/Resolving]
  - Dysarthria [Recovering/Resolving]
  - Speech disorder [Recovering/Resolving]
  - Feeling abnormal [Recovering/Resolving]
  - Toxic encephalopathy [Unknown]
  - Dizziness [Unknown]
  - Vomiting [Unknown]
